FAERS Safety Report 4390403-6 (Version None)
Quarter: 2004Q2

REPORT INFORMATION
  Report Type: 
  Country: None (occurrence: None)
  Receive Date: 20040628
  Receipt Date: 20040602
  Transmission Date: 20050107
  Serious: Yes (Hospitalization)
  Sender: FDA-Public Use
  Company Number: M2004.0464

PATIENT
  Age: 73 Year
  Sex: Male
  Weight: 40 kg

DRUGS (10)
  1. RIMACTANE [Suspect]
     Indication: ATYPICAL MYCOBACTERIAL INFECTION
     Dosage: 450 MG/DAY
     Dates: start: 20030123, end: 20030716
  2. LEVOTHYROXINE SODIUM [Suspect]
     Indication: HYPOTHYROIDISM
     Dosage: 25 UG/DAY
     Dates: end: 20030630
  3. ISONIAZID [Concomitant]
  4. ETHAMBUTOL HCL [Concomitant]
  5. DIHYDROERGOTAMINE MESILATE [Concomitant]
  6. CETIRIZINE HCL [Concomitant]
  7. MIDODRINE HCL [Concomitant]
  8. MEPENZOLATE BROMIDE [Concomitant]
  9. CAMOSTAT MESILATE [Concomitant]
  10. PYRIDOXAL PHOSPHATE [Concomitant]

REACTIONS (11)
  - ADRENAL INSUFFICIENCY [None]
  - BLOOD GLUCOSE DECREASED [None]
  - COMA [None]
  - DIZZINESS [None]
  - GAIT DISTURBANCE [None]
  - HYPONATRAEMIA [None]
  - INAPPROPRIATE ANTIDIURETIC HORMONE SECRETION [None]
  - LOSS OF CONSCIOUSNESS [None]
  - PNEUMONIA [None]
  - PYREXIA [None]
  - RATHKE'S CLEFT CYST [None]
